FAERS Safety Report 10507638 (Version 1)
Quarter: 2014Q4

REPORT INFORMATION
  Report Type: Spontaneous
  Country: AU (occurrence: AU)
  Receive Date: 20141009
  Receipt Date: 20141009
  Transmission Date: 20150528
  Serious: Yes (Hospitalization)
  Sender: FDA-Public Use
  Company Number: AU-SA-2014SA137261

PATIENT
  Age: 53 Year
  Sex: Female
  Weight: 71.4 kg

DRUGS (12)
  1. HERCEPTIN [Concomitant]
     Active Substance: TRASTUZUMAB
     Indication: BREAST CANCER
     Dosage: 52 WEEKS, INFUSION, 8 MG/KG LOADING DOSE, 21 DAY CYCLE
  2. HYDROCHLOROTHIAZIDE. [Concomitant]
     Active Substance: HYDROCHLOROTHIAZIDE
  3. TAXOTERE [Suspect]
     Active Substance: DOCETAXEL
     Indication: BREAST CANCER
     Dosage: INFUSION, 100 MG/M2 BSA, 21 DAY CYCLE
     Route: 065
  4. CYCLOPHOSPHAMIDE. [Concomitant]
     Active Substance: CYCLOPHOSPHAMIDE
     Indication: BREAST CANCER
     Dosage: 4 CYCLWS
  5. MULTIVITAMINS [Concomitant]
     Active Substance: VITAMINS
  6. VITAMIN D [Concomitant]
     Active Substance: CHOLECALCIFEROL
  7. ATENOLOL. [Concomitant]
     Active Substance: ATENOLOL
  8. DOXORUBICIN [Concomitant]
     Active Substance: DOXORUBICIN
     Indication: BREAST CANCER
     Dosage: 4 CYCLES
  9. TELMISARTAN. [Concomitant]
     Active Substance: TELMISARTAN
  10. GLUCOSAMINE [Concomitant]
     Active Substance: GLUCOSAMINE
  11. PANTOPRAZOLE [Concomitant]
     Active Substance: PANTOPRAZOLE SODIUM
  12. FISH OIL [Concomitant]
     Active Substance: FISH OIL

REACTIONS (8)
  - Blindness [Recovered/Resolved]
  - Colour vision tests abnormal [Recovered/Resolved]
  - Visual acuity tests abnormal [Recovered/Resolved]
  - Toxic optic neuropathy [Recovered/Resolved]
  - Optic disc haemorrhage [Recovered/Resolved]
  - Pupillary reflex impaired [Recovered/Resolved]
  - Visual field defect [Recovered/Resolved]
  - Papilloedema [Recovered/Resolved]
